FAERS Safety Report 25845850 (Version 2)
Quarter: 2025Q4

REPORT INFORMATION
  Report Type: Spontaneous
  Country: US (occurrence: US)
  Receive Date: 20250925
  Receipt Date: 20251009
  Transmission Date: 20260117
  Serious: No
  Sender: ABBVIE
  Company Number: US-ABBVIE-6472992

PATIENT
  Age: 73 Year
  Sex: Female
  Weight: 53 kg

DRUGS (7)
  1. BOTOX [Suspect]
     Active Substance: ONABOTULINUMTOXINA
     Indication: Neck pain
     Dosage: TIME INTERVAL: AS NECESSARY
     Route: 065
  2. BOTOX [Suspect]
     Active Substance: ONABOTULINUMTOXINA
     Indication: Neck pain
     Dosage: TIME INTERVAL: AS NECESSARY
     Route: 065
     Dates: start: 202503, end: 202503
  3. BOTOX [Suspect]
     Active Substance: ONABOTULINUMTOXINA
     Indication: Neck pain
     Route: 065
     Dates: start: 202506, end: 202506
  4. BOTOX [Suspect]
     Active Substance: ONABOTULINUMTOXINA
     Indication: Neck pain
     Dosage: TIME INTERVAL: AS NECESSARY: THERAPEUTIC
     Route: 065
     Dates: start: 202507, end: 202507
  5. BOTOX [Suspect]
     Active Substance: ONABOTULINUMTOXINA
     Indication: Neck pain
     Route: 065
     Dates: start: 202506, end: 202506
  6. BOTOX [Suspect]
     Active Substance: ONABOTULINUMTOXINA
     Indication: Neck pain
     Dosage: TIME INTERVAL: AS NECESSARY
     Route: 065
  7. BOTOX [Suspect]
     Active Substance: ONABOTULINUMTOXINA
     Indication: Neck pain
     Dosage: TIME INTERVAL: AS NECESSARY: THERAPEUTIC
     Route: 065
     Dates: start: 202504, end: 202504

REACTIONS (2)
  - Drug clearance increased [Unknown]
  - Dysphagia [Recovering/Resolving]

NARRATIVE: CASE EVENT DATE: 20250101
